FAERS Safety Report 9594678 (Version 2)
Quarter: 2013Q4

REPORT INFORMATION
  Report Type: Spontaneous
  Country: US (occurrence: None)
  Receive Date: 20131002
  Receipt Date: 20131022
  Transmission Date: 20140711
  Serious: Yes (Hospitalization)
  Sender: FDA-Public Use
  Company Number: 2013-1543

PATIENT
  Age: 61 Year
  Sex: Male

DRUGS (13)
  1. KYPROLIS [Suspect]
     Indication: PLASMA CELL MYELOMA
     Dosage: 44 MG, 2 IN 1 WK, IV
     Route: 042
     Dates: start: 20130221
  2. POMALYST (POMALIDOMIDE) (TABLET) (POMALIDOMIDE) [Concomitant]
  3. ACYCLOVIR (ACICLOVIR) (ACICLOVIR) [Concomitant]
  4. ALBUTEROL (SALBUTAMOL) (SALBUTAMOL) [Concomitant]
  5. CYMBALTA (DULOXETINE HYDROCHLORIDE) (DULOXETINE HYDROCHLORIDE) [Concomitant]
  6. NEURONTIN (GABAPENTIN) (GABAPENTIN) [Concomitant]
  7. LORAZEPAM (LORAZEPAM) (LORAZEPAM) [Concomitant]
  8. METOPROLOL (METOPROLOL) (METOPROLOL) [Concomitant]
  9. MS CONTIN (MORPHINE SULFATE) (MORPHINE SULFATE) [Concomitant]
  10. OXYCODONE (OXYCODONE) (OXYCODONE) [Concomitant]
  11. PROTONIX (PANTOPRAZOLE SODIUM SESQUIHYDRATE) (PANTOPRAZOLE SODIUM SESQUIHYDRATE) [Concomitant]
  12. SIMVASTATIN (SIMVASTATIN) (SIMVASTATIN) [Concomitant]
  13. PROCHLORPERAZINE (PROCHLORPERAZINE) (PROCHLORPERAZINE) [Concomitant]

REACTIONS (3)
  - Asthenia [None]
  - Hypoxia [None]
  - Dyspnoea [None]
